FAERS Safety Report 9829810 (Version 2)
Quarter: 2014Q1

REPORT INFORMATION
  Report Type: Spontaneous
  Country: US (occurrence: US)
  Receive Date: 20140120
  Receipt Date: 20140327
  Transmission Date: 20141002
  Serious: Yes (Life-Threatening, Other)
  Sender: FDA-Public Use
  Company Number: US-009507513-1401USA006740

PATIENT
  Sex: Female
  Weight: 58.5 kg

DRUGS (10)
  1. JANUMET [Suspect]
     Indication: TYPE 2 DIABETES MELLITUS
     Dosage: 50/500 MG, BID
     Route: 048
     Dates: start: 20121101, end: 20140114
  2. CARVEDILOL [Concomitant]
  3. GLYBURIDE [Concomitant]
     Dosage: QAM AND QPM TAKEN FROM LONG TIME
  4. FUROSEMIDE [Concomitant]
  5. LOSARTAN POTASSIUM TABLETS [Concomitant]
  6. NITRO [Concomitant]
  7. ASPIRIN [Concomitant]
     Dosage: UNK, QD
  8. COVERA [Concomitant]
     Dosage: UNK, BID
  9. LASIX (FUROSEMIDE) [Concomitant]
     Dosage: UNK, BID
  10. COZAAR [Concomitant]
     Dosage: UNK, QD

REACTIONS (3)
  - Renal failure [Recovered/Resolved]
  - Chest discomfort [Unknown]
  - Headache [Unknown]
